FAERS Safety Report 24969980 (Version 1)
Quarter: 2025Q1

REPORT INFORMATION
  Report Type: Report from Study
  Country: US (occurrence: US)
  Receive Date: 20250214
  Receipt Date: 20250214
  Transmission Date: 20250409
  Serious: Yes (Other)
  Sender: ACADIA PHARMACEUTICALS
  Company Number: US-ACADIA PHARMACEUTICALS INC.-ACA-2025-PIM-001514

PATIENT
  Sex: Male

DRUGS (1)
  1. NUPLAZID [Suspect]
     Active Substance: PIMAVANSERIN TARTRATE
     Indication: Parkinson^s disease
     Dosage: 34 MILLIGRAM, QD
     Route: 048
     Dates: start: 20241022

REACTIONS (8)
  - Parkinson^s disease [Unknown]
  - Hallucination [Unknown]
  - Vomiting [Unknown]
  - Constipation [Unknown]
  - Confusional state [Unknown]
  - Nausea [Unknown]
  - Gait disturbance [Unknown]
  - Product dose omission issue [Unknown]
